FAERS Safety Report 9665259 (Version 3)
Quarter: 2014Q1

REPORT INFORMATION
  Report Type: Spontaneous
  Country: US (occurrence: US)
  Receive Date: 20131103
  Receipt Date: 20140204
  Transmission Date: 20141002
  Serious: Yes (Hospitalization, Other)
  Sender: FDA-Public Use
  Company Number: US-UCBSA-097306

PATIENT
  Age: 55 Year
  Sex: Female
  Weight: 74.3 kg

DRUGS (8)
  1. VIMPAT [Suspect]
     Indication: CONVULSION
     Dosage: LOWER DOSE
     Route: 048
  2. VIMPAT [Suspect]
     Indication: CONVULSION
     Route: 048
     Dates: start: 2012, end: 2013
  3. VIMPAT [Suspect]
     Indication: CONVULSION
     Route: 048
     Dates: start: 201308
  4. TOPAMAX [Concomitant]
     Indication: CONVULSION
     Route: 048
     Dates: start: 201303
  5. GABAPENTIN [Concomitant]
     Indication: CONVULSION
  6. TYLENOL [Concomitant]
     Indication: HEADACHE
     Dosage: EXTRA STRENGTH
  7. TRIAMCINOLONE [Concomitant]
     Indication: EXCORIATION
     Dates: start: 2013
  8. HYDROCORTISONE [Concomitant]
     Indication: EXCORIATION
     Dosage: USP
     Dates: start: 2013

REACTIONS (9)
  - Complex partial seizures [Not Recovered/Not Resolved]
  - Grand mal convulsion [Recovered/Resolved]
  - Simple partial seizures [Unknown]
  - Alopecia [Unknown]
  - Crying [Not Recovered/Not Resolved]
  - Excoriation [Not Recovered/Not Resolved]
  - Tendonitis [Not Recovered/Not Resolved]
  - Wrong technique in drug usage process [Recovered/Resolved]
  - Balance disorder [Not Recovered/Not Resolved]
